FAERS Safety Report 11413057 (Version 1)
Quarter: 2015Q3

REPORT INFORMATION
  Report Type: Spontaneous
  Country: None (occurrence: DK)
  Receive Date: 20150824
  Receipt Date: 20150824
  Transmission Date: 20151125
  Serious: Yes (Hospitalization)
  Sender: FDA-Public Use
  Company Number: DK-MERCK KGAA-1041321

PATIENT

DRUGS (1)
  1. NOVOTHYROX [Suspect]
     Active Substance: LEVOTHYROXINE SODIUM

REACTIONS (22)
  - Abdominal pain [None]
  - Oedema [None]
  - Eczema [None]
  - Asthenia [None]
  - Swelling face [None]
  - Hyperhidrosis [None]
  - Palpitations [None]
  - Nausea [None]
  - Ear discomfort [None]
  - Myalgia [None]
  - Abdominal distension [None]
  - Dyspnoea [None]
  - Dysphagia [None]
  - Fatigue [None]
  - Heart rate irregular [None]
  - Feeling cold [None]
  - Paraesthesia [None]
  - Arthralgia [None]
  - Chest discomfort [None]
  - Skin disorder [None]
  - Weight increased [None]
  - Insomnia [None]
